FAERS Safety Report 6504154-2 (Version None)
Quarter: 2009Q4

REPORT INFORMATION
  Report Type: 
  Country: None (occurrence: None)
  Receive Date: 20091217
  Receipt Date: 20091211
  Transmission Date: 20100525
  Serious: Yes (Other)
  Sender: FDA-Public Use
  Company Number: US-ASTRAZENECA-2009SE31435

PATIENT
  Age: 88 Year
  Sex: Female

DRUGS (1)
  1. SEROQUEL [Suspect]
     Indication: DEMENTIA
     Dosage: 2X200 MG IN AM AND 2X300 MG IN PM TO TOTAL 1300 MG DAILY
     Route: 048
     Dates: start: 20091130

REACTIONS (4)
  - DEMENTIA [None]
  - DISABILITY [None]
  - GENERAL PHYSICAL HEALTH DETERIORATION [None]
  - HALLUCINATION [None]
